FAERS Safety Report 7627985 (Version 2)
Quarter: 2013Q4

REPORT INFORMATION
  Report Type: Report from Study
  Country: US (occurrence: US)
  Receive Date: 20101013
  Receipt Date: 20131112
  Transmission Date: 20140711
  Serious: Yes (Other)
  Sender: FDA-Public Use
  Company Number: US-ASTRAZENECA-2009SE18245

PATIENT
  Age: 42 Year
  Sex: Female

DRUGS (18)
  1. SYMBICORT PMDI [Suspect]
     Indication: ASTHMA
     Dosage: 160/4.5 MCG, 640 MCGS UNKNOWN FREQUENCY
     Route: 055
     Dates: start: 200906
  2. SYMBICORT PMDI [Suspect]
     Indication: CHRONIC OBSTRUCTIVE PULMONARY DISEASE
     Dosage: 160/4.5 MCG, 640 MCGS UNKNOWN FREQUENCY
     Route: 055
     Dates: start: 200906
  3. SYMBICORT PMDI [Suspect]
     Indication: ASTHMA
     Dosage: 160/4.5 MCGS, 960 MCGS UNKNOWN FREQUENCY
     Route: 055
     Dates: start: 200906
  4. SYMBICORT PMDI [Suspect]
     Indication: CHRONIC OBSTRUCTIVE PULMONARY DISEASE
     Dosage: 160/4.5 MCGS, 960 MCGS UNKNOWN FREQUENCY
     Route: 055
     Dates: start: 200906
  5. SYMBICORT PMDI [Suspect]
     Indication: ASTHMA
     Dosage: 2 PUFFS TWO TIMES A DAY
     Route: 055
  6. SYMBICORT PMDI [Suspect]
     Indication: CHRONIC OBSTRUCTIVE PULMONARY DISEASE
     Dosage: 2 PUFFS TWO TIMES A DAY
     Route: 055
  7. RHINOCORT AQUA NASAL SPRAY [Suspect]
     Indication: SINUS DISORDER
     Dosage: 1 SPRAY TO EACH NOSTRIL DAILY
     Route: 045
  8. RHINOCORT AQUA NASAL SPRAY [Suspect]
     Indication: SINUS DISORDER
     Dosage: 2 SPRAYS TO EACH NOSTRIL 2 TIMES PER DAY
     Route: 045
  9. NEXIUM [Suspect]
     Indication: GASTROOESOPHAGEAL REFLUX DISEASE
     Route: 048
     Dates: start: 201304, end: 201310
  10. NEXIUM [Suspect]
     Indication: GASTROOESOPHAGEAL REFLUX DISEASE
     Route: 048
     Dates: start: 201310
  11. NEXIUM [Suspect]
     Indication: GASTROOESOPHAGEAL REFLUX DISEASE
     Route: 048
  12. XANAX [Concomitant]
  13. PROAIR [Concomitant]
  14. ALBUTEROL RESCUE INHALER [Concomitant]
     Indication: ASTHMA
     Dosage: PRN
     Route: 055
     Dates: start: 2007
  15. ALBUTEROL SALINE [Concomitant]
     Indication: ASTHMA
     Dosage: BID
     Route: 045
     Dates: start: 2008
  16. PREDNISONE [Concomitant]
     Indication: LUNG DISORDER
     Dates: start: 2007
  17. XOLAIR INJECTIONS [Concomitant]
     Indication: ASTHMA
     Dosage: 1 Q2WK
     Route: 058
     Dates: start: 201309
  18. OXYGEN [Concomitant]
     Indication: ASTHMA

REACTIONS (16)
  - Ulcer haemorrhage [Unknown]
  - Dyspnoea [Unknown]
  - Sinusitis [Unknown]
  - Sinus disorder [Unknown]
  - Sinus disorder [Unknown]
  - Diarrhoea [Recovering/Resolving]
  - Gastric disorder [Unknown]
  - Hiatus hernia [Unknown]
  - Malaise [Unknown]
  - Adverse event [Unknown]
  - Gastrooesophageal reflux disease [Unknown]
  - Insomnia [Unknown]
  - Off label use [Unknown]
  - Intentional drug misuse [Unknown]
  - Therapy cessation [Unknown]
  - Drug ineffective [Unknown]
